FAERS Safety Report 23842403 (Version 6)
Quarter: 2024Q2

REPORT INFORMATION
  Report Type: Report from Study
  Country: CA (occurrence: CA)
  Receive Date: 20240510
  Receipt Date: 20240609
  Transmission Date: 20240716
  Serious: Yes (Other)
  Sender: FDA-Public Use
  Company Number: CA-BIOGEN-2024BI01263525

PATIENT
  Age: 10 Year
  Sex: Female

DRUGS (1)
  1. TYSABRI [Suspect]
     Active Substance: NATALIZUMAB
     Indication: Multiple sclerosis
     Route: 050
     Dates: start: 20220308

REACTIONS (6)
  - Ear infection [Recovered/Resolved]
  - Off label use [Not Recovered/Not Resolved]
  - Mental impairment [Unknown]
  - Viral infection [Not Recovered/Not Resolved]
  - Respiratory syncytial virus infection [Unknown]
  - Vomiting [Not Recovered/Not Resolved]

NARRATIVE: CASE EVENT DATE: 20220308
